FAERS Safety Report 9837154 (Version 1)
Quarter: 2013Q4

REPORT INFORMATION
  Report Type: Spontaneous
  Country: US (occurrence: None)
  Receive Date: 20131205
  Receipt Date: 20131205
  Transmission Date: 20140711
  Serious: Yes (Other)
  Sender: FDA-Public Use
  Company Number: 163-POMAL-13091278

PATIENT
  Age: 69 Year
  Sex: Female

DRUGS (9)
  1. POMALYST (POMALIDOMIDE) (4 MILLIGRAM CAPSULES) [Suspect]
     Indication: PLASMA CELL MYELOMA
     Route: 048
     Dates: start: 20130315
  2. ALLOPURINOL (ALLOPURINOL) [Concomitant]
  3. DAPSONE (DAPSONE) [Concomitant]
  4. OXYCODONE HCL (OXYCODONE HYDROCHLORIDE) [Concomitant]
  5. LEVOFLOXACIN (LEVOFLOXACIN) [Concomitant]
  6. LORAZEPAM (LORAZEPAM) [Concomitant]
  7. DOCUSATE SODIUM (DOCUSATE SODIUM) [Concomitant]
  8. SENNA LAXATIVE (SENNOSIDE A+B) [Concomitant]
  9. ASPIRIN (ACETYLSALICYLIC ACID) [Concomitant]

REACTIONS (2)
  - Infection [None]
  - C-reactive protein decreased [None]
